FAERS Safety Report 7967043-2 (Version None)
Quarter: 2011Q4

REPORT INFORMATION
  Report Type: 
  Country: None (occurrence: None)
  Receive Date: 20111209
  Receipt Date: 20111206
  Transmission Date: 20120403
  Serious: No
  Sender: FDA-Public Use
  Company Number: US-PFIZER INC-2011297988

PATIENT
  Sex: Female
  Weight: 74 kg

DRUGS (2)
  1. GENOTROPIN [Suspect]
     Indication: DWARFISM
     Dosage: 0.4 MG, 1X/DAY
     Route: 058
     Dates: start: 20110624
  2. ASACOL [Suspect]
     Indication: ABDOMINAL DISCOMFORT
     Dosage: UNK

REACTIONS (2)
  - TREMOR [None]
  - HYPERHIDROSIS [None]
